FAERS Safety Report 6815309-1 (Version None)
Quarter: 2010Q3

REPORT INFORMATION
  Report Type: 
  Country: None (occurrence: None)
  Receive Date: 20100702
  Receipt Date: 20100630
  Transmission Date: 20110219
  Serious: Yes (Other)
  Sender: FDA-Public Use
  Company Number: TW-ROXANE LABORATORIES, INC.-2010-RO-00780RO

PATIENT
  Age: 39 Year
  Sex: Female
  Weight: 56 kg

DRUGS (7)
  1. RISPERIDONE [Suspect]
     Indication: SCHIZOPHRENIA, PARANOID TYPE
     Dosage: 3 MG
  2. OLANZAPINE [Suspect]
     Indication: SCHIZOPHRENIA, PARANOID TYPE
     Dosage: 10 MG
  3. VALPROIC ACID [Suspect]
     Indication: DRUG THERAPY
     Dosage: 500 MG
  4. VALPROIC ACID [Suspect]
     Indication: TARDIVE DYSKINESIA
  5. CLONAZEPAM [Suspect]
     Indication: TARDIVE DYSKINESIA
     Dosage: 1.5 MG
  6. MEPHENOXALONE [Suspect]
     Indication: MUSCLE RELAXANT THERAPY
     Dosage: 600 MG
  7. MEPHENOXALONE [Suspect]
     Indication: TARDIVE DYSKINESIA

REACTIONS (3)
  - METABOLIC DISORDER [None]
  - TARDIVE DYSKINESIA [None]
  - WEIGHT INCREASED [None]
